FAERS Safety Report 7498648-3 (Version None)
Quarter: 2011Q2

REPORT INFORMATION
  Report Type: 
  Country: None (occurrence: None)
  Receive Date: 20110524
  Receipt Date: 20110519
  Transmission Date: 20111010
  Serious: Yes (Death, Other)
  Sender: FDA-Public Use
  Company Number: US-ASTELLAS-2011US002282

PATIENT
  Sex: Female

DRUGS (1)
  1. PROGRAF [Suspect]
     Indication: LUNG TRANSPLANT
     Dosage: 2 MG IN MORNING/2.5 MG IN EVENING
     Route: 048
     Dates: start: 20080803, end: 20110510

REACTIONS (4)
  - DEATH [None]
  - RESPIRATORY FAILURE [None]
  - RENAL FAILURE [None]
  - OFF LABEL USE [None]
